FAERS Safety Report 8311564-X (Version None)
Quarter: 2012Q2

REPORT INFORMATION
  Report Type: 
  Country: None (occurrence: None)
  Receive Date: 20120425
  Receipt Date: 20120420
  Transmission Date: 20120825
  Serious: Yes (Hospitalization, Other)
  Sender: FDA-Public Use
  Company Number: US-MERCK-1203USA04535

PATIENT
  Age: 48 Year
  Sex: Female

DRUGS (5)
  1. PREDNISONE [Concomitant]
     Route: 065
  2. OXYCODONE [Concomitant]
     Route: 065
  3. FOSAMAX [Suspect]
     Route: 048
     Dates: start: 20110801
  4. ZITHROMAX [Concomitant]
     Route: 065
  5. OXYCONTIN [Concomitant]
     Route: 065

REACTIONS (17)
  - ORGANISING PNEUMONIA [None]
  - ADVERSE EVENT [None]
  - ARTHRITIS BACTERIAL [None]
  - PULMONARY EMBOLISM [None]
  - IRON DEFICIENCY ANAEMIA [None]
  - HYPOTHYROIDISM [None]
  - POLYARTHRITIS [None]
  - CLOSTRIDIUM DIFFICILE COLITIS [None]
  - OSTEOMYELITIS [None]
  - HYPERTENSION [None]
  - EMBOLISM VENOUS [None]
  - BREAST DISORDER [None]
  - TOOTH DISORDER [None]
  - DIABETES MELLITUS [None]
  - CONSTIPATION [None]
  - CEREBROVASCULAR ACCIDENT [None]
  - MIGRAINE [None]
